FAERS Safety Report 4968780-4 (Version None)
Quarter: 2006Q2

REPORT INFORMATION
  Report Type: 
  Country: None (occurrence: None)
  Receive Date: 20060411
  Receipt Date: 20060406
  Transmission Date: 20061013
  Serious: Yes (Hospitalization)
  Sender: FDA-Public Use
  Company Number: 2006CG00652

PATIENT
  Age: 76 Year
  Sex: Male
  Weight: 69 kg

DRUGS (12)
  1. HYTACAND [Suspect]
     Route: 048
     Dates: end: 20051201
  2. CELECTOL [Suspect]
     Route: 048
     Dates: end: 20051201
  3. DEBRIDAT [Concomitant]
     Route: 048
  4. LASILIX [Concomitant]
     Route: 048
     Dates: end: 20051201
  5. LASILIX [Concomitant]
     Route: 048
     Dates: start: 20051201
  6. MEDIATOR [Concomitant]
     Route: 048
  7. DIFFU-K [Concomitant]
     Route: 048
  8. ISOPTIN [Concomitant]
  9. OGAST [Concomitant]
  10. ATARAX [Concomitant]
  11. DAFALGAN [Concomitant]
     Indication: PAIN
  12. OXYGEN [Concomitant]

REACTIONS (4)
  - DIZZINESS [None]
  - HYPOTENSION [None]
  - LOSS OF CONSCIOUSNESS [None]
  - MALAISE [None]
